FAERS Safety Report 22600913 (Version 2)
Quarter: 2023Q2

REPORT INFORMATION
  Report Type: Spontaneous
  Country: JP (occurrence: JP)
  Receive Date: 20230614
  Receipt Date: 20230630
  Transmission Date: 20230722
  Serious: Yes (Hospitalization, Other)
  Sender: FDA-Public Use
  Company Number: JP-ELI_LILLY_AND_COMPANY-JP202305009039

PATIENT
  Age: 86 Year
  Sex: Male

DRUGS (3)
  1. MOUNJARO [Suspect]
     Active Substance: TIRZEPATIDE
     Indication: Type 2 diabetes mellitus
     Dosage: 2.5 MG
     Route: 058
     Dates: start: 20230420
  2. MOUNJARO [Suspect]
     Active Substance: TIRZEPATIDE
     Dosage: 5.0 MG
     Route: 058
     Dates: start: 20230518, end: 20230602
  3. ELDECALCITOL [Suspect]
     Active Substance: ELDECALCITOL
     Indication: Product used for unknown indication
     Route: 065

REACTIONS (7)
  - Blood calcium increased [Not Recovered/Not Resolved]
  - Pneumonia [Not Recovered/Not Resolved]
  - Dehydration [Unknown]
  - Blood pressure decreased [Unknown]
  - Somnolence [Unknown]
  - Weight decreased [Unknown]
  - Decreased appetite [Unknown]

NARRATIVE: CASE EVENT DATE: 20230526
